FAERS Safety Report 5322542-7 (Version None)
Quarter: 2007Q1

REPORT INFORMATION
  Report Type: 
  Country: None (occurrence: None)
  Receive Date: 20070220
  Receipt Date: 20061227
  Transmission Date: 20070707
  Serious: No
  Sender: FDA-Public Use
  Company Number: TPA2007A00041

PATIENT
  Age: 56 Year
  Sex: Male
  Weight: 79.3795 kg

DRUGS (1)
  1. ROZEREM [Suspect]
     Indication: MIDDLE INSOMNIA
     Dosage: 8 MG, HS, PER ORAL
     Route: 048
     Dates: start: 20061208, end: 20061220

REACTIONS (2)
  - DRUG INEFFECTIVE [None]
  - POOR QUALITY SLEEP [None]
